FAERS Safety Report 17054010 (Version 1)
Quarter: 2019Q4

REPORT INFORMATION
  Report Type: Spontaneous
  Country: US (occurrence: US)
  Receive Date: 20191120
  Receipt Date: 20191120
  Transmission Date: 20200122
  Serious: Yes (Other)
  Sender: FDA-Public Use
  Company Number: None

PATIENT
  Age: 82 Year
  Sex: Male
  Weight: 81 kg

DRUGS (22)
  1. LISINOPRIL. [Concomitant]
     Active Substance: LISINOPRIL
  2. NORCO [Concomitant]
     Active Substance: ACETAMINOPHEN\HYDROCODONE BITARTRATE
  3. PLAVIX [Concomitant]
     Active Substance: CLOPIDOGREL BISULFATE
  4. GUIAFENESIN [Concomitant]
  5. MELOXICAM. [Concomitant]
     Active Substance: MELOXICAM
  6. MULTIVITAMIN [Concomitant]
     Active Substance: VITAMINS
  7. DONEPEZIL. [Concomitant]
     Active Substance: DONEPEZIL
  8. HYDROCORTISONE. [Concomitant]
     Active Substance: HYDROCORTISONE
  9. COMBIVENT RESPIMAT [Concomitant]
     Active Substance: ALBUTEROL SULFATE\IPRATROPIUM BROMIDE
  10. LACTULOSE. [Concomitant]
     Active Substance: LACTULOSE
  11. MIRALAX [Concomitant]
     Active Substance: POLYETHYLENE GLYCOL 3350
  12. GLEEVEC [Suspect]
     Active Substance: IMATINIB MESYLATE
     Indication: CHRONIC MYELOID LEUKAEMIA
     Route: 048
     Dates: start: 20191010
  13. ASPIRIN LOW DOSE [Concomitant]
     Active Substance: ASPIRIN
  14. ATORVASTATIN [Concomitant]
     Active Substance: ATORVASTATIN
  15. GLIPIZIDE-METFORMIN [Concomitant]
  16. MONTELUKAST [Concomitant]
     Active Substance: MONTELUKAST SODIUM
  17. QUETIAPINE. [Concomitant]
     Active Substance: QUETIAPINE
  18. LYRICA [Concomitant]
     Active Substance: PREGABALIN
  19. FUROSEMIDE. [Concomitant]
     Active Substance: FUROSEMIDE
  20. PREDNISONE. [Concomitant]
     Active Substance: PREDNISONE
  21. ERGOCALCIFEROL. [Concomitant]
     Active Substance: ERGOCALCIFEROL
  22. FLEET ENEMA [Concomitant]
     Active Substance: SODIUM PHOSPHATE, DIBASIC\SODIUM PHOSPHATE, MONOBASIC

REACTIONS (3)
  - Rash [None]
  - Confusional state [None]
  - Pruritus [None]

NARRATIVE: CASE EVENT DATE: 20191120
